FAERS Safety Report 12596554 (Version 1)
Quarter: 2016Q3

REPORT INFORMATION
  Report Type: Other
  Country: CA (occurrence: CA)
  Receive Date: 20160726
  Receipt Date: 20160726
  Transmission Date: 20161109
  Serious: Yes (Hospitalization)
  Sender: FDA-Public Use
  Company Number: CA-HLSUS-2016-CA-000305

PATIENT
  Sex: Male

DRUGS (9)
  1. BACLOFEN. [Concomitant]
     Active Substance: BACLOFEN
     Dates: end: 2016
  2. KEMADRIN [Concomitant]
     Active Substance: PROCYCLIDINE HYDROCHLORIDE
  3. DESMOPRESSIN [Concomitant]
     Active Substance: DESMOPRESSIN
     Dates: end: 2016
  4. CLOZARIL [Suspect]
     Active Substance: CLOZAPINE
     Route: 048
     Dates: start: 20040408, end: 2016
  5. CLONAZEPAM. [Concomitant]
     Active Substance: CLONAZEPAM
     Dates: start: 200807, end: 201605
  6. PROMATHAZINE [Concomitant]
     Dates: end: 2016
  7. PANTOPRAZOLE [Concomitant]
     Active Substance: PANTOPRAZOLE SODIUM
     Dates: start: 200906, end: 201605
  8. FLUVOXAMINE [Concomitant]
     Active Substance: FLUVOXAMINE
     Dates: end: 2016
  9. LIPITOR [Concomitant]
     Active Substance: ATORVASTATIN CALCIUM
     Dosage: INCREASED TO 40MG ON 13-MAR-16

REACTIONS (9)
  - Drug ineffective [Unknown]
  - Seizure [Unknown]
  - Schizophrenia [Unknown]
  - Sexual dysfunction [Unknown]
  - Dyslipidaemia [Unknown]
  - Blood pressure increased [Recovered/Resolved]
  - Constipation [Recovered/Resolved]
  - Faecaloma [Unknown]
  - Thrombocytopenia [Unknown]

NARRATIVE: CASE EVENT DATE: 2016
